FAERS Safety Report 25717840 (Version 1)
Quarter: 2025Q3

REPORT INFORMATION
  Report Type: Report from Study
  Country: EU (occurrence: EU)
  Receive Date: 20250822
  Receipt Date: 20250822
  Transmission Date: 20251021
  Serious: Yes (Hospitalization)
  Sender: IMMUNOCORE
  Company Number: EU-IMMUNOCORE, LTD.-2025-IMC-004577

PATIENT

DRUGS (3)
  1. KIMMTRAK [Suspect]
     Active Substance: TEBENTAFUSP-TEBN
     Indication: Choroid melanoma
     Dates: start: 20210624, end: 20210707
  2. KIMMTRAK [Suspect]
     Active Substance: TEBENTAFUSP-TEBN
     Dates: start: 202107
  3. DIETARY SUPPLEMENT [Concomitant]
     Active Substance: DIETARY SUPPLEMENT
     Indication: Supplementation therapy

REACTIONS (26)
  - Hyperthermia [Recovered/Resolved]
  - Weight decreased [Unknown]
  - Mucosal inflammation [Unknown]
  - Haemorrhage [Unknown]
  - Neuropathy peripheral [Unknown]
  - Gingival pain [Unknown]
  - Noninfective gingivitis [Unknown]
  - Asthenia [Recovered/Resolved]
  - Pyrexia [Recovered/Resolved]
  - Vomiting [Unknown]
  - Constipation [Unknown]
  - Dyspnoea [Unknown]
  - Diarrhoea [Unknown]
  - Skin toxicity [Unknown]
  - Pain [Unknown]
  - Tremor [Unknown]
  - Respiration abnormal [Unknown]
  - Palpitations [Unknown]
  - Anxiety [Unknown]
  - Feeding disorder [Unknown]
  - Skin mass [Unknown]
  - General physical health deterioration [Recovered/Resolved]
  - Pyrexia [Recovered/Resolved]
  - Diarrhoea [Recovered/Resolved]
  - Chills [Unknown]
  - Noninfective gingivitis [Unknown]

NARRATIVE: CASE EVENT DATE: 20210101
